FAERS Safety Report 7326203-4 (Version None)
Quarter: 2011Q1

REPORT INFORMATION
  Report Type: 
  Country: None (occurrence: None)
  Receive Date: 20110302
  Receipt Date: 20110222
  Transmission Date: 20110831
  Serious: Yes (Death, Hospitalization)
  Sender: FDA-Public Use
  Company Number: A0775661A

PATIENT
  Age: 45 Year
  Sex: Male
  Weight: 102.3 kg

DRUGS (9)
  1. NEXIUM [Concomitant]
  2. GLYBURIDE [Concomitant]
     Dates: start: 20061101
  3. AMBIEN [Concomitant]
  4. GLUCOPHAGE [Concomitant]
     Dates: start: 19970101, end: 20060101
  5. AVANDIA [Suspect]
     Indication: TYPE 2 DIABETES MELLITUS
     Dosage: 8MG PER DAY
     Route: 048
     Dates: start: 20000101, end: 20061201
  6. ZOLOFT [Concomitant]
  7. DEPAKOTE [Concomitant]
  8. LIPITOR [Concomitant]
  9. EFFEXOR [Concomitant]

REACTIONS (15)
  - CARDIOGENIC SHOCK [None]
  - TACHYCARDIA [None]
  - ACUTE MYOCARDIAL INFARCTION [None]
  - CORONARY ARTERY DISEASE [None]
  - CHEST PAIN [None]
  - HYPERTENSION [None]
  - DIZZINESS [None]
  - DYSPNOEA [None]
  - MYOCARDIAL INFARCTION [None]
  - NAUSEA [None]
  - ASTHENIA [None]
  - SUDDEN CARDIAC DEATH [None]
  - VERTIGO [None]
  - DIARRHOEA [None]
  - INFLUENZA LIKE ILLNESS [None]
